FAERS Safety Report 17604340 (Version 1)
Quarter: 2020Q1

REPORT INFORMATION
  Report Type: Spontaneous
  Country: US (occurrence: US)
  Receive Date: 20200328
  Receipt Date: 20200328
  Transmission Date: 20200409
  Serious: Yes (Other)
  Sender: FDA-Public Use
  Company Number: None

PATIENT

DRUGS (1)
  1. LEVOFLOXACIN 500MG [Suspect]
     Active Substance: LEVOFLOXACIN
     Indication: URINARY TRACT INFECTION
     Dosage: ?          QUANTITY:1 PILL ;?
     Route: 048
     Dates: start: 20200312, end: 20200321

REACTIONS (8)
  - Toxicity to various agents [None]
  - Tendon pain [None]
  - Arthralgia [None]
  - Myalgia [None]
  - Insomnia [None]
  - Asthenia [None]
  - Disturbance in attention [None]
  - Loss of personal independence in daily activities [None]
